FAERS Safety Report 13471307 (Version 1)
Quarter: 2017Q2

REPORT INFORMATION
  Report Type: Spontaneous
  Country: FI (occurrence: FI)
  Receive Date: 20170424
  Receipt Date: 20170424
  Transmission Date: 20170830
  Serious: Yes (Other)
  Sender: FDA-Public Use
  Company Number: FI-ORION CORPORATION ORION PHARMA-TREX2015-0637

PATIENT
  Age: 67 Year
  Sex: Male

DRUGS (12)
  1. AVODART [Concomitant]
     Active Substance: DUTASTERIDE
     Route: 065
  2. EMCONCOR [Concomitant]
     Active Substance: BISOPROLOL FUMARATE
     Route: 065
  3. FOLIVER [Concomitant]
     Route: 065
  4. HUMALOG [Concomitant]
     Active Substance: INSULIN LISPRO
     Route: 065
  5. VITAMIN D [Concomitant]
     Active Substance: CHOLECALCIFEROL
  6. TREXAN [Suspect]
     Active Substance: METHOTREXATE SODIUM
     Indication: ARTHRITIS
     Dosage: STRENGHT 10MG
     Route: 048
     Dates: start: 2001
  7. LEVEMIR [Concomitant]
     Active Substance: INSULIN DETEMIR
     Route: 065
  8. TREXAN [Suspect]
     Active Substance: METHOTREXATE SODIUM
     Dosage: AT DOSING 25-15 MG PER WEEK
     Route: 048
     Dates: start: 200307
  9. ATORVASTATIN [Concomitant]
     Active Substance: ATORVASTATIN
     Route: 065
  10. ARCOXIA [Concomitant]
     Active Substance: ETORICOXIB
     Route: 065
  11. ENBREL [Suspect]
     Active Substance: ETANERCEPT
     Indication: ARTHRITIS
     Route: 058
     Dates: start: 20030711, end: 20150909
  12. NITROSID [Concomitant]
     Route: 065

REACTIONS (1)
  - Superficial spreading melanoma stage unspecified [Recovered/Resolved]

NARRATIVE: CASE EVENT DATE: 201508
